FAERS Safety Report 5456943-3 (Version None)
Quarter: 2007Q3

REPORT INFORMATION
  Report Type: 
  Country: None (occurrence: None)
  Receive Date: 20070918
  Receipt Date: 20061204
  Transmission Date: 20080115
  Serious: No
  Sender: FDA-Public Use
  Company Number: US-ASTRAZENECA-2006UW27047

PATIENT
  Age: 63 Year
  Sex: Female
  Weight: 56.7 kg

DRUGS (9)
  1. SEROQUEL [Suspect]
     Indication: ANXIETY
     Route: 048
  2. SEROQUEL [Suspect]
     Indication: DEPRESSION
     Route: 048
  3. SEROQUEL [Suspect]
     Route: 048
  4. SEROQUEL [Suspect]
     Route: 048
  5. CYMBALTA [Concomitant]
  6. XANAX [Concomitant]
  7. VICODIN [Concomitant]
  8. BUSPAR [Concomitant]
  9. ANTIHYPERTENSIVE [Concomitant]

REACTIONS (4)
  - ABNORMAL BEHAVIOUR [None]
  - DYSARTHRIA [None]
  - FEELING DRUNK [None]
  - INSOMNIA [None]
